FAERS Safety Report 4511058-3 (Version None)
Quarter: 2004Q4

REPORT INFORMATION
  Report Type: 
  Country: None (occurrence: None)
  Receive Date: 20041018
  Receipt Date: 20040819
  Transmission Date: 20050328
  Serious: No
  Sender: FDA-Public Use
  Company Number: 208550

PATIENT
  Age: 63 Year
  Sex: Female
  Weight: 74 kg

DRUGS (10)
  1. XOLAIR [Suspect]
     Indication: ASTHMA
     Dosage: 150 MG, Q4W, SUBCUTANEOUS
     Route: 058
     Dates: start: 20040525, end: 20040727
  2. XOLAIR [Suspect]
     Dates: start: 20040626
  3. XOLAIR [Suspect]
     Dates: start: 20040727
  4. ADVAIR (FLUTICASONE PROPIONATE, SALMETEROL XINAFOATE) [Concomitant]
  5. SINGULAIR [Concomitant]
  6. PREVACID [Concomitant]
  7. NASACORT [Concomitant]
  8. ASTELIN [Concomitant]
  9. ALLEGRA [Concomitant]
  10. MAXAIR [Concomitant]

REACTIONS (2)
  - BURSITIS [None]
  - TENDONITIS [None]
